FAERS Safety Report 20209502 (Version 5)
Quarter: 2024Q2

REPORT INFORMATION
  Report Type: Report from Study
  Country: BR (occurrence: BR)
  Receive Date: 20211221
  Receipt Date: 20240508
  Transmission Date: 20240715
  Serious: Yes (Other)
  Sender: FDA-Public Use
  Company Number: BR-TAKEDA-2020TUS044463

PATIENT
  Age: 61 Year
  Sex: Male
  Weight: 62 kg

DRUGS (5)
  1. HUMAN IMMUNOGLOBULIN G\HYALURONIDASE RECOMBINANT HUMAN [Suspect]
     Active Substance: HUMAN IMMUNOGLOBULIN G\HYALURONIDASE (HUMAN RECOMBINANT)
     Indication: Primary immunodeficiency syndrome
     Dosage: 250 MILLIGRAM, Q4WEEKS
     Route: 058
  2. HUMAN IMMUNOGLOBULIN G\HYALURONIDASE RECOMBINANT HUMAN [Suspect]
     Active Substance: HUMAN IMMUNOGLOBULIN G\HYALURONIDASE (HUMAN RECOMBINANT)
     Dosage: 200 MILLILITER, Q4WEEKS
     Route: 058
     Dates: start: 20181219
  3. HUMAN IMMUNOGLOBULIN G\HYALURONIDASE RECOMBINANT HUMAN [Suspect]
     Active Substance: HUMAN IMMUNOGLOBULIN G\HYALURONIDASE (HUMAN RECOMBINANT)
     Dosage: 250 MILLILITER, Q4WEEKS
     Route: 058
  4. HUMAN IMMUNOGLOBULIN G\HYALURONIDASE RECOMBINANT HUMAN [Suspect]
     Active Substance: HUMAN IMMUNOGLOBULIN G\HYALURONIDASE (HUMAN RECOMBINANT)
     Dosage: 200 MILLILITER, Q4WEEKS
     Route: 058
  5. Covid-19 vaccine [Concomitant]
     Dosage: UNK
     Route: 065
     Dates: start: 20220104

REACTIONS (4)
  - Prostatic disorder [Recovered/Resolved]
  - Abdominal discomfort [Recovered/Resolved]
  - Infusion site haematoma [Recovered/Resolved]
  - Product availability issue [Unknown]

NARRATIVE: CASE EVENT DATE: 20211112
